FAERS Safety Report 7498536-2 (Version None)
Quarter: 2011Q2

REPORT INFORMATION
  Report Type: 
  Country: None (occurrence: None)
  Receive Date: 20110524
  Receipt Date: 20090102
  Transmission Date: 20111010
  Serious: Yes (Hospitalization, Other)
  Sender: FDA-Public Use
  Company Number: US-BAYER-200841743NA

PATIENT
  Age: 75 Year
  Sex: Female
  Weight: 65.76 kg

DRUGS (14)
  1. LORAZEPAM [Concomitant]
     Dosage: 1 MG, UNK
     Route: 048
     Dates: start: 20040108
  2. ASPIRIN [Concomitant]
     Dosage: 162 MG, UNK
     Route: 048
     Dates: start: 20040108
  3. COUMADIN [Concomitant]
     Dosage: 5 MG, UNK
     Route: 048
     Dates: start: 20040108
  4. FOSAMAX [Concomitant]
     Dosage: 70 MG, UNK
     Route: 048
  5. CITRACAL PLUS [Concomitant]
     Dosage: UNK
     Route: 048
     Dates: start: 20040108
  6. DIURIL [Concomitant]
  7. DIGOXIN [Concomitant]
     Dosage: 0.25 MG, UNK
     Route: 048
     Dates: start: 20040108
  8. PROTAMINE SULFATE [Concomitant]
  9. HEPARIN [Concomitant]
     Route: 042
  10. TRASYLOL [Suspect]
     Indication: MITRAL VALVE REPLACEMENT
     Dosage: 1 ML, UNK
     Route: 042
     Dates: start: 20040202, end: 20040202
  11. ATENOLOL [Concomitant]
     Dosage: 50 MG, UNK
     Route: 048
  12. TRASYLOL [Suspect]
     Indication: CORONARY ARTERY BYPASS
     Dosage: 200 ML, UNK
     Route: 042
     Dates: start: 20040202, end: 20040202
  13. CEFAZOLIN [Concomitant]
     Route: 042
  14. LIDOCAINE [Concomitant]
     Route: 042

REACTIONS (11)
  - PHYSICAL DISABILITY [None]
  - ANXIETY [None]
  - FEAR OF DEATH [None]
  - UNEVALUABLE EVENT [None]
  - NERVOUSNESS [None]
  - PAIN [None]
  - EMOTIONAL DISTRESS [None]
  - RENAL FAILURE [None]
  - DEPRESSION [None]
  - ANHEDONIA [None]
  - INJURY [None]
